FAERS Safety Report 7615804-1 (Version None)
Quarter: 2011Q3

REPORT INFORMATION
  Report Type: 
  Country: None (occurrence: None)
  Receive Date: 20110718
  Receipt Date: 20110718
  Transmission Date: 20111222
  Serious: No
  Sender: FDA-Public Use
  Company Number: None

PATIENT
  Sex: Female
  Weight: 97 kg

DRUGS (4)
  1. FLUOROURACIL [Suspect]
     Dosage: 10469 MG
     Dates: end: 20110621
  2. IRINOTECAN HCL [Suspect]
     Dosage: 684 MG
     Dates: end: 20110621
  3. LEUCOVORIN CALCIUM [Suspect]
     Dosage: 1662 MG
     Dates: end: 20110621
  4. BEVACIZUMAB (RHUMAB VEGF) [Suspect]
     Dosage: 970 MG
     Dates: end: 20110621

REACTIONS (1)
  - NEUTROPENIA [None]
